FAERS Safety Report 24323069 (Version 1)
Quarter: 2024Q3

REPORT INFORMATION
  Report Type: Spontaneous
  Country: AU (occurrence: AU)
  Receive Date: 20240916
  Receipt Date: 20240916
  Transmission Date: 20241017
  Serious: Yes (Death, Other)
  Sender: ABBVIE
  Company Number: AU-JNJFOC-20240930958

PATIENT

DRUGS (2)
  1. IMBRUVICA [Suspect]
     Active Substance: IBRUTINIB
     Indication: Mantle cell lymphoma refractory
     Route: 048
  2. BRUKINSA [Suspect]
     Active Substance: ZANUBRUTINIB
     Indication: Mantle cell lymphoma refractory
     Route: 065

REACTIONS (4)
  - Mantle cell lymphoma recurrent [Fatal]
  - Neuropathy peripheral [Fatal]
  - Skin haemorrhage [Fatal]
  - Drug intolerance [Unknown]
